FAERS Safety Report 7942041-3 (Version None)
Quarter: 2011Q4

REPORT INFORMATION
  Report Type: 
  Country: None (occurrence: None)
  Receive Date: 20111128
  Receipt Date: 20111117
  Transmission Date: 20120403
  Serious: Yes (Other)
  Sender: FDA-Public Use
  Company Number: US-BAYER-2011-019830

PATIENT
  Age: 48 Year
  Sex: Female
  Weight: 81.633 kg

DRUGS (3)
  1. YAZ [Suspect]
  2. YASMIN [Suspect]
  3. OGESTREL 0.5/50-28 [Concomitant]

REACTIONS (4)
  - GALLBLADDER INJURY [None]
  - INJURY [None]
  - PAIN [None]
  - CHOLECYSTITIS [None]
